FAERS Safety Report 17178272 (Version 2)
Quarter: 2020Q1

REPORT INFORMATION
  Report Type: Spontaneous
  Country: BE (occurrence: BE)
  Receive Date: 20191219
  Receipt Date: 20200107
  Transmission Date: 20200409
  Serious: Yes (Other)
  Sender: FDA-Public Use
  Company Number: BE-MYLANLABS-2019M1125556

PATIENT
  Age: 13 Year
  Sex: Female

DRUGS (2)
  1. CINACALCET HYDROCHLORIDE. [Suspect]
     Active Substance: CINACALCET HYDROCHLORIDE
     Indication: FAMILIAL HYPOCALCIURIC HYPERCALCAEMIA
     Dosage: 40 MILLIGRAM
     Route: 065
  2. CINACALCET HYDROCHLORIDE. [Suspect]
     Active Substance: CINACALCET HYDROCHLORIDE
     Dosage: 30 MILLIGRAM
     Route: 065

REACTIONS (3)
  - Hypocalcaemia [Unknown]
  - Pancreatitis [Unknown]
  - Off label use [Unknown]
